FAERS Safety Report 18835185 (Version 2)
Quarter: 2021Q1

REPORT INFORMATION
  Report Type: Spontaneous
  Country: JP (occurrence: JP)
  Receive Date: 20210203
  Receipt Date: 20210209
  Transmission Date: 20210419
  Serious: Yes (Life-Threatening, Other)
  Sender: FDA-Public Use
  Company Number: JP-CELGENEUS-JPN-20210200493

PATIENT
  Age: 75 Year
  Sex: Male
  Weight: 49 kg

DRUGS (6)
  1. ABRAXANE [Suspect]
     Active Substance: PACLITAXEL
     Indication: LUNG ADENOCARCINOMA
     Dosage: 152 MILLIGRAM
     Route: 041
     Dates: start: 20200611
  2. KEYTRUDA [Concomitant]
     Active Substance: PEMBROLIZUMAB
     Indication: LUNG ADENOCARCINOMA
     Dosage: 200 MILLIGRAM
     Route: 041
     Dates: start: 20200611
  3. ABRAXANE [Suspect]
     Active Substance: PACLITAXEL
     Dosage: 152 MILLIGRAM
     Route: 041
     Dates: start: 20200717, end: 20200813
  4. CARBOPLATIN. [Concomitant]
     Active Substance: CARBOPLATIN
     Indication: LUNG ADENOCARCINOMA
     Dosage: 372 MILLIGRAM
     Route: 041
     Dates: start: 20200611
  5. CARBOPLATIN. [Concomitant]
     Active Substance: CARBOPLATIN
     Dosage: 372 MILLIGRAM
     Route: 041
     Dates: start: 20200717, end: 20200813
  6. KEYTRUDA [Concomitant]
     Active Substance: PEMBROLIZUMAB
     Dosage: 200 MILLIGRAM
     Route: 041
     Dates: start: 20200717, end: 20210128

REACTIONS (3)
  - Pneumonia [Recovered/Resolved]
  - Small intestinal perforation [Recovered/Resolved]
  - Sepsis [Recovered/Resolved]

NARRATIVE: CASE EVENT DATE: 20200616
